FAERS Safety Report 10027276 (Version 2)
Quarter: 2014Q1

REPORT INFORMATION
  Report Type: Report from Study
  Country: US (occurrence: US)
  Receive Date: 20140321
  Receipt Date: 20140321
  Transmission Date: 20141002
  Serious: Yes (Hospitalization)
  Sender: FDA-Public Use
  Company Number: US-JNJFOC-20131106281

PATIENT
  Age: 69 Year
  Sex: Male

DRUGS (11)
  1. REMICADE [Suspect]
     Indication: RHEUMATOID ARTHRITIS
     Route: 042
     Dates: start: 20130508
  2. FIORICET [Concomitant]
     Indication: OSTEOARTHRITIS
     Route: 065
  3. FIORICET [Concomitant]
     Indication: PAIN
     Route: 065
  4. SOMA [Concomitant]
     Indication: PAIN
     Route: 065
  5. SOMA [Concomitant]
     Indication: OSTEOARTHRITIS
     Route: 065
  6. TYLENOL [Concomitant]
     Indication: OSTEOARTHRITIS
     Route: 065
  7. TYLENOL [Concomitant]
     Indication: PAIN
     Route: 065
  8. LIPITOR [Concomitant]
     Indication: HYPERLIPIDAEMIA
     Route: 065
  9. NEXIUM [Concomitant]
     Indication: GASTROOESOPHAGEAL REFLUX DISEASE
     Route: 065
  10. CYMBALTA [Concomitant]
     Indication: PAIN
     Route: 065
  11. METHOTREXATE [Concomitant]
     Indication: RHEUMATOID ARTHRITIS
     Route: 065

REACTIONS (2)
  - Pneumonia [Not Recovered/Not Resolved]
  - Disseminated cryptococcosis [Recovering/Resolving]
